FAERS Safety Report 24750905 (Version 1)
Quarter: 2024Q4

REPORT INFORMATION
  Report Type: Spontaneous
  Country: US (occurrence: US)
  Receive Date: 20241219
  Receipt Date: 20241219
  Transmission Date: 20250115
  Serious: Yes (Hospitalization, Other)
  Sender: NAARI PHARMA
  Company Number: US-NAARI PTE LIMITED-2024NP000072

PATIENT
  Age: 27 Year
  Sex: Female

DRUGS (2)
  1. DROSPIRENONE AND ETHINYL ESTRADIOL [Suspect]
     Active Substance: DROSPIRENONE\ETHINYL ESTRADIOL
     Indication: Heavy menstrual bleeding
     Dosage: UNK
     Route: 065
  2. RIVAROXABAN [Concomitant]
     Active Substance: RIVAROXABAN
     Indication: Embolism venous
     Dosage: UNK
     Route: 065

REACTIONS (3)
  - Embolism venous [Unknown]
  - Withdrawal bleed [Unknown]
  - Off label use [Unknown]
